FAERS Safety Report 11833106 (Version 1)
Quarter: 2015Q4

REPORT INFORMATION
  Report Type: Report from Study
  Country: US (occurrence: US)
  Receive Date: 20151214
  Receipt Date: 20151214
  Transmission Date: 20160305
  Serious: Yes (Other)
  Sender: FDA-Public Use
  Company Number: US-SA-2015SA205909

PATIENT
  Age: 59 Year
  Sex: Male

DRUGS (2)
  1. COLESTYRAMINE [Concomitant]
     Active Substance: CHOLESTYRAMINE
     Dosage: FIVE TIMES A DAY
     Dates: start: 20151102
  2. AUBAGIO [Suspect]
     Active Substance: TERIFLUNOMIDE
     Indication: MULTIPLE SCLEROSIS
     Route: 048
     Dates: start: 20150930, end: 20151102

REACTIONS (6)
  - Erythema [Not Recovered/Not Resolved]
  - Angina pectoris [Recovered/Resolved]
  - Renal pain [Recovered/Resolved]
  - Oedema peripheral [Unknown]
  - Chromaturia [Recovered/Resolved]
  - Urticaria [Recovered/Resolved]

NARRATIVE: CASE EVENT DATE: 2015
